FAERS Safety Report 26032466 (Version 1)
Quarter: 2025Q4

REPORT INFORMATION
  Report Type: Spontaneous
  Country: US (occurrence: US)
  Receive Date: 20251112
  Receipt Date: 20251112
  Transmission Date: 20260117
  Serious: No
  Sender: AZURITY PHARMACEUTICALS
  Company Number: US-AZURITY PHARMACEUTICALS, INC.-AZR202412-001421

PATIENT
  Age: 22 Year
  Sex: Female

DRUGS (2)
  1. ZENZEDI [Suspect]
     Active Substance: DEXTROAMPHETAMINE SULFATE
     Indication: Attention deficit hyperactivity disorder
     Dosage: 30 MILLIGRAM, QD
     Route: 065
  2. ZENZEDI [Suspect]
     Active Substance: DEXTROAMPHETAMINE SULFATE
     Dosage: 15 MILLIGRAM, BID
     Route: 065

REACTIONS (2)
  - Insurance issue [Unknown]
  - Off label use [Unknown]
